FAERS Safety Report 25610284 (Version 1)
Quarter: 2025Q3

REPORT INFORMATION
  Report Type: Spontaneous
  Country: CA (occurrence: CA)
  Receive Date: 20250728
  Receipt Date: 20250728
  Transmission Date: 20251020
  Serious: Yes (Other)
  Sender: AUROBINDO
  Company Number: CA-MLMSERVICE-20250707-PI568046-00246-1

PATIENT
  Age: 44 Year
  Sex: Male

DRUGS (6)
  1. OLANZAPINE [Suspect]
     Active Substance: OLANZAPINE
     Indication: Schizophrenia
     Dosage: 20 MILLIGRAM, ONCE A DAY (NIGHTLY)
     Route: 065
  2. RISPERIDONE [Suspect]
     Active Substance: RISPERIDONE
     Indication: Schizophrenia
     Dosage: 4 MILLIGRAM, ONCE A DAY (TITRATED TO 4 MG/D)
     Route: 065
  3. XANOMELINE [Concomitant]
     Active Substance: XANOMELINE
     Indication: Paranoia
     Dosage: 125 MILLIGRAM, TWO TIMES A DAY
     Route: 065
  4. XANOMELINE [Concomitant]
     Active Substance: XANOMELINE
     Indication: Schizophrenia
     Dosage: 50 MILLIGRAM, TWO TIMES A DAY (AT LEAST 2 DAYS)
     Route: 065
  5. TROSPIUM [Concomitant]
     Active Substance: TROSPIUM
     Indication: Paranoia
     Dosage: 30 MILLIGRAM, TWO TIMES A DAY
     Route: 065
  6. TROSPIUM [Concomitant]
     Active Substance: TROSPIUM
     Indication: Schizophrenia
     Dosage: 20 MILLIGRAM, TWO TIMES A DAY (AT LEAST 2 DAYS)
     Route: 065

REACTIONS (6)
  - Metabolic disorder [Unknown]
  - Weight increased [Unknown]
  - Blunted affect [Unknown]
  - Cognitive disorder [Unknown]
  - Akathisia [Unknown]
  - Treatment noncompliance [Unknown]
